APPROVED DRUG PRODUCT: IBUPROFEN AND FAMOTIDINE
Active Ingredient: FAMOTIDINE; IBUPROFEN
Strength: 26.6MG;800MG
Dosage Form/Route: TABLET;ORAL
Application: A203658 | Product #001 | TE Code: AB
Applicant: PH HEALTH LTD
Approved: Mar 22, 2024 | RLD: No | RS: No | Type: RX